FAERS Safety Report 7042451-5 (Version None)
Quarter: 2010Q4

REPORT INFORMATION
  Report Type: 
  Country: None (occurrence: None)
  Receive Date: 20101013
  Receipt Date: 20100727
  Transmission Date: 20110411
  Serious: No
  Sender: FDA-Public Use
  Company Number: US-ASTRAZENECA-2009SE13674

PATIENT
  Age: 68 Year
  Sex: Male

DRUGS (4)
  1. SYMBICORT [Suspect]
     Indication: CHRONIC OBSTRUCTIVE PULMONARY DISEASE
     Dosage: 80/4.5 UG 2 PUFFS
     Route: 055
  2. SYMBICORT [Suspect]
     Dosage: 80/4.5 UG 2 PUFFS
     Route: 055
  3. SYMBICORT [Suspect]
     Dosage: 80/4.5 UG 2 PUFFS
     Route: 055
  4. ALBUTEROL [Concomitant]

REACTIONS (4)
  - ASTHENIA [None]
  - ASTHMA [None]
  - DRUG INEFFECTIVE [None]
  - DYSPNOEA [None]
